FAERS Safety Report 18821842 (Version 1)
Quarter: 2021Q1

REPORT INFORMATION
  Report Type: Spontaneous
  Country: US (occurrence: US)
  Receive Date: 20210202
  Receipt Date: 20210202
  Transmission Date: 20210419
  Serious: Yes (Other)
  Sender: FDA-Public Use
  Company Number: US-PACIRA-2021000063

PATIENT
  Age: 46 Year
  Sex: Female

DRUGS (15)
  1. VANCOMYCIN [Concomitant]
     Active Substance: VANCOMYCIN
     Indication: PREOPERATIVE CARE
     Dosage: 1 G PRE?OP
     Route: 042
  2. ANCEF [Concomitant]
     Active Substance: CEFAZOLIN SODIUM
     Indication: PREOPERATIVE CARE
     Dosage: 1 G PRE?OP
     Route: 042
  3. TYLENOL [Concomitant]
     Active Substance: ACETAMINOPHEN
     Indication: POSTOPERATIVE CARE
     Dosage: 1000 MG
     Route: 065
  4. VERSED [Concomitant]
     Active Substance: MIDAZOLAM HYDROCHLORIDE
     Indication: PREOPERATIVE CARE
     Dosage: 1 MG PRE?OP, 2 MG PERI?OP
     Route: 065
  5. MELOXICAM. [Concomitant]
     Active Substance: MELOXICAM
     Indication: POSTOPERATIVE CARE
     Dosage: 7.5 MG
     Route: 065
  6. TRAMADOL. [Concomitant]
     Active Substance: TRAMADOL
     Indication: POSTOPERATIVE CARE
     Dosage: 50MG
     Route: 065
  7. COLACE [Concomitant]
     Active Substance: DOCUSATE SODIUM
     Indication: POSTOPERATIVE CARE
     Dosage: 100 MG
     Route: 065
  8. OXYCODONE [Concomitant]
     Active Substance: OXYCODONE
     Indication: POSTOPERATIVE CARE
     Dosage: OXTCONTIN 10 MG PRE?OP, OXYCODONE 5 MG MULTIMODAL PROTOCOL
     Route: 065
  9. EXPAREL [Suspect]
     Active Substance: BUPIVACAINE
     Indication: POSTOPERATIVE ANALGESIA
     Dosage: 266 MG, 20 CC
     Route: 065
  10. FENTANYL. [Concomitant]
     Active Substance: FENTANYL
     Indication: PREOPERATIVE CARE
     Dosage: 50 MCG PRE?OP
     Route: 065
  11. GABAPENTIN. [Concomitant]
     Active Substance: GABAPENTIN
     Indication: POSTOPERATIVE CARE
     Dosage: 300 MG
     Route: 065
  12. CLINDAMYCIN. [Concomitant]
     Active Substance: CLINDAMYCIN
     Indication: POSTOPERATIVE CARE
     Dosage: 300 MG
     Route: 065
  13. ZOFRAN [Concomitant]
     Active Substance: ONDANSETRON HYDROCHLORIDE
     Indication: POSTOPERATIVE CARE
     Dosage: 4 MG
     Route: 065
  14. ENTERIC?COATED ASPIRIN 325 MG [Concomitant]
     Indication: THROMBOSIS PROPHYLAXIS
     Dosage: BID
     Route: 065
  15. CORTISONE [Concomitant]
     Active Substance: CORTISONE
     Indication: PRODUCT USED FOR UNKNOWN INDICATION
     Dosage: NOT PROVIDED
     Route: 065

REACTIONS (1)
  - Manipulation [Unknown]
